FAERS Safety Report 4280032-7 (Version None)
Quarter: 2004Q1

REPORT INFORMATION
  Report Type: 
  Country: None (occurrence: None)
  Receive Date: 20040126
  Receipt Date: 20040113
  Transmission Date: 20041129
  Serious: Yes (Hospitalization)
  Sender: FDA-Public Use
  Company Number: 04P-083-0247085-00

PATIENT
  Age: 53 Year
  Sex: Male

DRUGS (4)
  1. BIAXIN [Suspect]
     Indication: HELICOBACTER INFECTION
     Dosage: 1 GM, 2 IN 1 D,PER ORAL
     Route: 048
     Dates: start: 20031111, end: 20031116
  2. AMOXICILLIN TRIHYDRATE [Suspect]
     Indication: HELICOBACTER INFECTION
     Dosage: 2 GM, 2 IN 1 D, PER ORAL
     Route: 048
     Dates: start: 20031111, end: 20031116
  3. RABEPRAZOLE SODIUM [Suspect]
     Indication: HELICOBACTER INFECTION
     Dosage: 20 MG, 1 IN 1 D, PER ORAL
     Route: 048
     Dates: start: 20031111, end: 20031116
  4. ASPIRIN [Suspect]
     Indication: ATRIAL FIBRILLATION
     Dates: start: 20010101

REACTIONS (7)
  - ANAEMIA [None]
  - ASTHENIA [None]
  - DIVERTICULUM INTESTINAL [None]
  - GASTRIC ULCER [None]
  - GASTROINTESTINAL HAEMORRHAGE [None]
  - MELAENA [None]
  - PEPTIC ULCER [None]
